FAERS Safety Report 15606613 (Version 1)
Quarter: 2018Q4

REPORT INFORMATION
  Report Type: Spontaneous
  Country: US (occurrence: US)
  Receive Date: 20181112
  Receipt Date: 20181112
  Transmission Date: 20190205
  Serious: No
  Sender: FDA-Public Use
  Company Number: US-SUNOVION-2018SUN004313

PATIENT
  Sex: Female

DRUGS (1)
  1. LEVALBUTEROL TARTRATE. [Suspect]
     Active Substance: LEVALBUTEROL TARTRATE
     Indication: ASTHMA
     Dosage: UNK
     Route: 055
     Dates: start: 201810, end: 201810

REACTIONS (3)
  - Retching [Unknown]
  - Bronchospasm [Unknown]
  - Cough [Unknown]
